FAERS Safety Report 18811567 (Version 2)
Quarter: 2021Q1

REPORT INFORMATION
  Report Type: Spontaneous
  Country: US (occurrence: US)
  Receive Date: 20210129
  Receipt Date: 20210219
  Transmission Date: 20210419
  Serious: Yes (Other)
  Sender: FDA-Public Use
  Company Number: US-BAUSCH-BL-2021-002616

PATIENT
  Sex: Female

DRUGS (20)
  1. TETRABENAZINE. [Suspect]
     Active Substance: TETRABENAZINE
     Route: 065
     Dates: start: 2016, end: 2016
  2. PRAMIPEXOLE. [Suspect]
     Active Substance: PRAMIPEXOLE
     Indication: TREMOR
     Route: 065
     Dates: start: 2015
  3. AMANTADINE. [Suspect]
     Active Substance: AMANTADINE HYDROCHLORIDE
     Indication: TREMOR
     Route: 065
     Dates: start: 2015
  4. FLUOXETINE [Suspect]
     Active Substance: FLUOXETINE HYDROCHLORIDE
     Dosage: TAPERED
     Route: 065
  5. TETRABENAZINE. [Suspect]
     Active Substance: TETRABENAZINE
     Route: 065
     Dates: start: 201112
  6. PRIMIDONE. [Suspect]
     Active Substance: PRIMIDONE
     Indication: TREMOR
     Route: 065
     Dates: start: 2015
  7. PROPRANOLOL [Suspect]
     Active Substance: PROPRANOLOL HYDROCHLORIDE
     Dosage: UP TO 20 MG
     Route: 065
     Dates: start: 2015, end: 2015
  8. SINEMET [Suspect]
     Active Substance: CARBIDOPA\LEVODOPA
     Indication: TREMOR
     Route: 065
     Dates: start: 2015
  9. TRAZODONE [Concomitant]
     Active Substance: TRAZODONE HYDROCHLORIDE
     Indication: TARDIVE DYSKINESIA
     Dosage: NIGHTLY
     Dates: start: 201112
  10. TETRABENAZINE. [Suspect]
     Active Substance: TETRABENAZINE
     Indication: TARDIVE DYSKINESIA
     Route: 065
     Dates: start: 201106
  11. PROPRANOLOL [Suspect]
     Active Substance: PROPRANOLOL HYDROCHLORIDE
     Indication: TREMOR
     Route: 065
     Dates: start: 201307, end: 2015
  12. QUETIAPINE. [Suspect]
     Active Substance: QUETIAPINE
     Route: 065
  13. FLUOXETINE [Suspect]
     Active Substance: FLUOXETINE HYDROCHLORIDE
     Indication: TARDIVE DYSKINESIA
     Route: 065
     Dates: start: 201112
  14. TETRABENAZINE. [Suspect]
     Active Substance: TETRABENAZINE
     Route: 065
     Dates: start: 2015, end: 2015
  15. TETRABENAZINE. [Suspect]
     Active Substance: TETRABENAZINE
     Route: 065
     Dates: start: 2017
  16. QUETIAPINE. [Suspect]
     Active Substance: QUETIAPINE
     Indication: TARDIVE DYSKINESIA
     Route: 065
     Dates: start: 201101
  17. TETRABENAZINE. [Suspect]
     Active Substance: TETRABENAZINE
     Route: 065
  18. QUETIAPINE. [Suspect]
     Active Substance: QUETIAPINE
     Route: 065
     Dates: start: 201112
  19. BENZTROPINE. [Concomitant]
     Active Substance: BENZTROPINE
     Indication: TARDIVE DYSKINESIA
     Dates: start: 2008
  20. LIDOCAINE. [Concomitant]
     Active Substance: LIDOCAINE
     Indication: TARDIVE DYSKINESIA
     Route: 048
     Dates: start: 2008

REACTIONS (2)
  - Parkinsonism [Recovered/Resolved]
  - Therapy non-responder [Unknown]

NARRATIVE: CASE EVENT DATE: 201307
